FAERS Safety Report 5433411-6 (Version None)
Quarter: 2007Q3

REPORT INFORMATION
  Report Type: 
  Country: None (occurrence: None)
  Receive Date: 20070831
  Receipt Date: 20070821
  Transmission Date: 20080115
  Serious: Yes (Hospitalization)
  Sender: FDA-Public Use
  Company Number: US-KINGPHARMUSA00001-K200701068

PATIENT

DRUGS (16)
  1. SKELAXIN [Suspect]
     Indication: MUSCLE RELAXANT THERAPY
     Dates: start: 20061130
  2. INVESTIGATIONAL DRUG [Suspect]
     Dosage: UNK, TID
     Route: 048
     Dates: start: 20061110, end: 20061123
  3. INVESTIGATIONAL DRUG [Suspect]
     Dosage: 3 CAPS, TID
     Route: 048
     Dates: start: 20061124, end: 20061125
  4. LORTAB [Suspect]
  5. CLONAZEPAM [Suspect]
  6. ACETAMINOPHEN [Concomitant]
  7. PROZAC [Concomitant]
  8. SYNTHROID [Concomitant]
  9. ATENOLOL [Concomitant]
  10. SINGULAIR   /01362601/ [Concomitant]
  11. RHINOCORT  /00614601/ [Concomitant]
  12. NEXIUM [Concomitant]
  13. LASIX [Concomitant]
  14. BENICAR [Concomitant]
  15. PHENERGAN /00033001/ [Concomitant]
     Indication: NAUSEA
     Route: 042
     Dates: start: 20061126
  16. FLAGYL  /00012501/ [Concomitant]
     Indication: DIVERTICULITIS
     Dates: start: 20061101

REACTIONS (2)
  - FALL [None]
  - SPINAL COMPRESSION FRACTURE [None]
